FAERS Safety Report 10778224 (Version 1)
Quarter: 2015Q1

REPORT INFORMATION
  Report Type: Spontaneous
  Country: US (occurrence: US)
  Receive Date: 20150209
  Receipt Date: 20150209
  Transmission Date: 20150721
  Serious: Yes (Other)
  Sender: FDA-Public Use
  Company Number: US-GLAXOSMITHKLINE-US2015GSK014686

PATIENT
  Sex: Male

DRUGS (9)
  1. ZYPREXA [Suspect]
     Active Substance: OLANZAPINE
     Indication: CORTICAL DYSPLASIA
     Dosage: UNK, U
  2. CLONIDINE. [Suspect]
     Active Substance: CLONIDINE
     Indication: CORTICAL DYSPLASIA
     Dosage: UNK, U
  3. DEPAKOTE [Suspect]
     Active Substance: DIVALPROEX SODIUM
     Indication: CORTICAL DYSPLASIA
     Dosage: UNK, U
  4. TRILEPTAL [Suspect]
     Active Substance: OXCARBAZEPINE
     Indication: CORTICAL DYSPLASIA
     Dosage: UNK, U
  5. VALIUM [Suspect]
     Active Substance: DIAZEPAM
     Indication: CORTICAL DYSPLASIA
     Dosage: UNK, U
  6. KEPPRA [Suspect]
     Active Substance: LEVETIRACETAM
     Indication: CORTICAL DYSPLASIA
     Dosage: UNK, U
  7. DILANTIN [Suspect]
     Active Substance: PHENYTOIN
     Indication: CORTICAL DYSPLASIA
     Dosage: UNK, U
  8. LAMICTAL [Suspect]
     Active Substance: LAMOTRIGINE
     Indication: CORTICAL DYSPLASIA
     Dosage: UNK, U
  9. INTUNIV [Suspect]
     Active Substance: GUANFACINE HYDROCHLORIDE
     Indication: CORTICAL DYSPLASIA
     Dosage: UNK, U

REACTIONS (13)
  - Homicidal ideation [Unknown]
  - Seizure [Unknown]
  - Brain lobectomy [Unknown]
  - Condition aggravated [Unknown]
  - Adverse drug reaction [Unknown]
  - Insomnia [Unknown]
  - Anger [Unknown]
  - Psychomotor hyperactivity [Unknown]
  - Psychotic disorder [Unknown]
  - Suicidal ideation [Unknown]
  - Fatigue [Unknown]
  - Lethargy [Unknown]
  - Drug ineffective for unapproved indication [Unknown]
